FAERS Safety Report 9470824 (Version 3)
Quarter: 2013Q3

REPORT INFORMATION
  Report Type: Report from Study
  Country: FR (occurrence: FR)
  Receive Date: 20130822
  Receipt Date: 20130828
  Transmission Date: 20140515
  Serious: Yes (Death)
  Sender: FDA-Public Use
  Company Number: FR-ELI_LILLY_AND_COMPANY-FR201308003603

PATIENT
  Age: 75 Year
  Sex: Male
  Weight: 50 kg

DRUGS (4)
  1. PEMETREXED [Suspect]
     Indication: NON-SMALL CELL LUNG CANCER
     Dosage: 500 MG/M2, EVERY 3 WKS
     Route: 042
     Dates: start: 20120816, end: 20121011
  2. FOLIC ACID [Concomitant]
     Indication: PROPHYLAXIS
     Dosage: UNK
     Dates: start: 20120725, end: 20121021
  3. VITAMIN B12 [Concomitant]
     Dosage: UNK
     Dates: start: 20120725, end: 20121021
  4. DEXAMETHASONE [Concomitant]
     Dosage: UNK
     Dates: start: 20120725, end: 20121021

REACTIONS (1)
  - Febrile neutropenia [Fatal]
